FAERS Safety Report 9109858 (Version 3)
Quarter: 2013Q2

REPORT INFORMATION
  Report Type: Spontaneous
  Country: FR (occurrence: FR)
  Receive Date: 20130222
  Receipt Date: 20130611
  Transmission Date: 20140414
  Serious: Yes (Hospitalization)
  Sender: FDA-Public Use
  Company Number: FR-JNJFOC-20130209535

PATIENT
  Age: 45 Year
  Sex: Female

DRUGS (7)
  1. REMICADE [Suspect]
     Indication: RHEUMATOID ARTHRITIS
     Dosage: 59TH INFUSION
     Route: 042
     Dates: start: 20130109
  2. REMICADE [Suspect]
     Indication: RHEUMATOID ARTHRITIS
     Dosage: 58TH INFUSION
     Route: 042
     Dates: start: 20121031
  3. REMICADE [Suspect]
     Indication: RHEUMATOID ARTHRITIS
     Dosage: STARTED 11 OR 12 YEARS BACK
     Route: 042
     Dates: start: 2001
  4. METHOTREXATE [Suspect]
     Indication: RHEUMATOID ARTHRITIS
     Dosage: STARTED 11 OR 12 YEARS BACK
     Route: 048
     Dates: start: 2001
  5. DESOBEL [Suspect]
     Indication: CONTRACEPTION
     Dosage: 2 MONTHS
     Route: 048
     Dates: start: 201209, end: 20121214
  6. CYCLEANE [Concomitant]
     Route: 065
     Dates: end: 201210
  7. SPECIAFOLDINE [Concomitant]
     Indication: RHEUMATOID ARTHRITIS
     Route: 065

REACTIONS (2)
  - Pulmonary embolism [Recovering/Resolving]
  - Deep vein thrombosis [Recovering/Resolving]
